FAERS Safety Report 9950604 (Version 1)
Quarter: 2014Q1

REPORT INFORMATION
  Report Type: Spontaneous
  Country: BR (occurrence: BR)
  Receive Date: 20140304
  Receipt Date: 20140304
  Transmission Date: 20141002
  Serious: Yes (Other)
  Sender: FDA-Public Use
  Company Number: BR-PFIZER INC-2014056738

PATIENT
  Age: 44 Year
  Sex: Female
  Weight: 97 kg

DRUGS (5)
  1. ATENOLOL [Suspect]
     Indication: HYPERTENSION
     Dosage: UNK, DAILY
     Route: 048
  2. ZOLADEX LA [Suspect]
     Indication: UTERINE LEIOMYOMA
     Dosage: 10.8 MG, EVERY 3 MONTHS
     Route: 058
     Dates: start: 201206, end: 201209
  3. ZOLADEX LA [Suspect]
     Dosage: 3.6 MG, MONTHLY
     Route: 058
     Dates: start: 201307, end: 201308
  4. ZOLADEX LA [Suspect]
     Dosage: 10.8 MG, EVERY 3 MONTHS
     Route: 058
     Dates: start: 20140102
  5. PURAN T4 [Concomitant]
     Indication: HYPOTHYROIDISM
     Dosage: 25 UG, DAILY

REACTIONS (12)
  - Uterine leiomyoma [Unknown]
  - Drug ineffective [Unknown]
  - Amenorrhoea [Recovered/Resolved]
  - Hot flush [Not Recovered/Not Resolved]
  - Feeling hot [Not Recovered/Not Resolved]
  - Dysmenorrhoea [Recovered/Resolved]
  - Hyperhidrosis [Not Recovered/Not Resolved]
  - Retching [Not Recovered/Not Resolved]
  - Menstrual disorder [Recovered/Resolved]
  - Balance disorder [Unknown]
  - Dizziness [Not Recovered/Not Resolved]
  - Depression [Not Recovered/Not Resolved]
